FAERS Safety Report 5190012-5 (Version None)
Quarter: 2006Q4

REPORT INFORMATION
  Report Type: 
  Country: None (occurrence: None)
  Receive Date: 20061218
  Receipt Date: 20061206
  Transmission Date: 20070319
  Serious: Yes (Disabling, Other)
  Sender: FDA-Public Use
  Company Number: 2006144855

PATIENT
  Age: 50 Year
  Sex: Male

DRUGS (1)
  1. ZOLOFT [Suspect]
     Indication: DEPRESSION
     Dosage: 150 MG (1 D), ORAL
     Route: 048
     Dates: start: 20060801

REACTIONS (3)
  - EYE DISORDER [None]
  - SCOTOMA [None]
  - THROMBOSIS [None]
